FAERS Safety Report 5873914-3 (Version None)
Quarter: 2008Q3

REPORT INFORMATION
  Report Type: 
  Country: None (occurrence: None)
  Receive Date: 20080903
  Receipt Date: 20080818
  Transmission Date: 20090109
  Serious: Yes (Death)
  Sender: FDA-Public Use
  Company Number: 20066

PATIENT
  Age: 81 Year
  Sex: Female

DRUGS (1)
  1. CARBOPLATIN [Suspect]
     Indication: OVARIAN CANCER RECURRENT
     Dosage: 1700 MG TOTAL

REACTIONS (4)
  - ACUTE CORONARY SYNDROME [None]
  - CARDIAC ARREST [None]
  - CARDIOVASCULAR DISORDER [None]
  - DRUG HYPERSENSITIVITY [None]
